FAERS Safety Report 23665506 (Version 1)
Quarter: 2024Q1

REPORT INFORMATION
  Report Type: Spontaneous
  Country: NL (occurrence: NL)
  Receive Date: 20240323
  Receipt Date: 20240323
  Transmission Date: 20240409
  Serious: Yes (Death, Other)
  Sender: FDA-Public Use
  Company Number: NL-AMGEN-NLDSP2024055272

PATIENT
  Age: 40 Year
  Sex: Male

DRUGS (1)
  1. FILGRASTIM [Suspect]
     Active Substance: FILGRASTIM
     Indication: Neutropenia
     Dosage: UNK
     Route: 065

REACTIONS (5)
  - Renal failure [Fatal]
  - Secondary amyloidosis [Unknown]
  - Malaise [Unknown]
  - Bone pain [Unknown]
  - Headache [Unknown]
